FAERS Safety Report 10783978 (Version 1)
Quarter: 2015Q1

REPORT INFORMATION
  Report Type: Report from Study
  Country: GB (occurrence: GB)
  Receive Date: 20150211
  Receipt Date: 20150211
  Transmission Date: 20150721
  Serious: Yes (Hospitalization)
  Sender: FDA-Public Use
  Company Number: GB-ABBVIE-15K-167-1343711-00

PATIENT
  Age: 56 Year
  Sex: Male
  Weight: 71 kg

DRUGS (2)
  1. INFLUENZA VACCINES [Concomitant]
     Active Substance: INFLUENZA VIRUS VACCINE
     Indication: PRODUCT USED FOR UNKNOWN INDICATION
     Dates: start: 20131215, end: 20131215
  2. HUMIRA [Suspect]
     Active Substance: ADALIMUMAB
     Indication: PSORIASIS
     Route: 058
     Dates: start: 20120911

REACTIONS (2)
  - Road traffic accident [Recovered/Resolved]
  - Spinal column injury [Recovered/Resolved]

NARRATIVE: CASE EVENT DATE: 20140815
